FAERS Safety Report 15126133 (Version 1)
Quarter: 2018Q3

REPORT INFORMATION
  Report Type: Spontaneous
  Country: US (occurrence: US)
  Receive Date: 20180614
  Receipt Date: 20180614
  Transmission Date: 20181010
  Serious: Yes (Hospitalization)
  Sender: FDA-Public Use
  Company Number: None

PATIENT
  Age: 51 Year
  Sex: Female

DRUGS (10)
  1. CAPECITABINE. [Suspect]
     Active Substance: CAPECITABINE
     Indication: HEPATIC CANCER
     Route: 048
     Dates: start: 20170412
  2. MUTIVITAMIN [Concomitant]
  3. DULOXETINE. [Concomitant]
     Active Substance: DULOXETINE
  4. LEVOTHYROXIN [Concomitant]
     Active Substance: LEVOTHYROXINE
  5. OXYCODONE [Concomitant]
     Active Substance: OXYCODONE
  6. ANTIBIOTIC OIN [Concomitant]
  7. SYNTHROID [Concomitant]
     Active Substance: LEVOTHYROXINE SODIUM
  8. VANCOMYCIN [Concomitant]
     Active Substance: VANCOMYCIN
  9. CLACIUM/D3 [Concomitant]
  10. LYRICA [Concomitant]
     Active Substance: PREGABALIN

REACTIONS (1)
  - Infection [None]

NARRATIVE: CASE EVENT DATE: 20180613
